FAERS Safety Report 24231258 (Version 3)
Quarter: 2025Q3

REPORT INFORMATION
  Report Type: Report from Study
  Country: US (occurrence: US)
  Receive Date: 20240821
  Receipt Date: 20250803
  Transmission Date: 20251020
  Serious: Yes (Hospitalization, Other)
  Sender: ALEXION PHARMACEUTICALS
  Company Number: 2024A184586

PATIENT
  Age: 64 Year
  Sex: Male
  Weight: 64.4 kg

DRUGS (1)
  1. BREZTRI [Suspect]
     Active Substance: BUDESONIDE\FORMOTEROL\GLYCOPYRROLATE
     Indication: Chronic obstructive pulmonary disease
     Dosage: 2 PUFFS, BID
     Dates: end: 20240801

REACTIONS (5)
  - Urinary tract disorder [Unknown]
  - Micturition disorder [Unknown]
  - Pneumonia [Unknown]
  - Urinary retention [Recovered/Resolved]
  - Product formulation issue [Unknown]
